FAERS Safety Report 16510175 (Version 1)
Quarter: 2019Q3

REPORT INFORMATION
  Report Type: Spontaneous
  Country: US (occurrence: US)
  Receive Date: 20190701
  Receipt Date: 20190701
  Transmission Date: 20191004
  Serious: Yes (Other)
  Sender: FDA-Public Use
  Company Number: None

PATIENT
  Age: 48 Year
  Sex: Male
  Weight: 78.75 kg

DRUGS (1)
  1. METHYLPHENIDATE HYDROCHLORIDE EXTENDED RELEASE (ER) [Suspect]
     Active Substance: METHYLPHENIDATE HYDROCHLORIDE
     Indication: ATTENTION DEFICIT/HYPERACTIVITY DISORDER
     Dosage: ?          QUANTITY:1 TABLET(S);?
     Route: 048
     Dates: start: 20190612

REACTIONS (3)
  - Product substitution issue [None]
  - Headache [None]
  - Anxiety [None]

NARRATIVE: CASE EVENT DATE: 20190701
